FAERS Safety Report 7312768-5 (Version None)
Quarter: 2011Q1

REPORT INFORMATION
  Report Type: 
  Country: None (occurrence: None)
  Receive Date: 20110224
  Receipt Date: 20110214
  Transmission Date: 20110831
  Serious: Yes (Life-Threatening, Hospitalization)
  Sender: FDA-Public Use
  Company Number: FR-WATSON-2011-01834

PATIENT
  Age: 48 Year
  Sex: Male

DRUGS (3)
  1. CALCIUM FOLINATE [Suspect]
     Indication: COLON CANCER
     Dosage: UNK
  2. OXALIPLATIN [Suspect]
     Indication: COLON CANCER
     Dosage: UNK
  3. FLUOROURACIL [Suspect]
     Indication: COLON CANCER
     Dosage: UNK

REACTIONS (2)
  - STRESS CARDIOMYOPATHY [None]
  - CARDIAC ARREST [None]
